FAERS Safety Report 4352061-6 (Version None)
Quarter: 2004Q2

REPORT INFORMATION
  Report Type: 
  Country: None (occurrence: None)
  Receive Date: 20040429
  Receipt Date: 20040116
  Transmission Date: 20050107
  Serious: No
  Sender: FDA-Public Use
  Company Number: 2004-113357-NL

PATIENT
  Age: 33 Year
  Sex: Female
  Weight: 66 kg

DRUGS (3)
  1. NUVARING [Suspect]
     Indication: CONTRACEPTION
     Dosage: DF DAILY VAGINAL
     Route: 067
  2. INSULIN [Concomitant]
  3. MICONAZOLE NITRATE VAGINAL SUPPOSITORIES [Concomitant]

REACTIONS (2)
  - DEVICE FAILURE [None]
  - MEDICAL DEVICE DISCOMFORT [None]
